FAERS Safety Report 8181784-6 (Version None)
Quarter: 2012Q1

REPORT INFORMATION
  Report Type: 
  Country: None (occurrence: None)
  Receive Date: 20120302
  Receipt Date: 20111111
  Transmission Date: 20120608
  Serious: No
  Sender: FDA-Public Use
  Company Number: US-AMGEN-USASP2011059728

PATIENT
  Age: 72 Year
  Sex: Female

DRUGS (19)
  1. DEXAMETHASONE [Concomitant]
     Dosage: 40 MG, QD
     Route: 048
     Dates: start: 20100404, end: 20100412
  2. SYNTHROID [Concomitant]
     Dosage: 75 MUG, UNK
     Dates: start: 20100409
  3. MIRALAX [Concomitant]
     Dosage: 17 G, QD
     Route: 048
  4. NPLATE [Suspect]
     Indication: THROMBOCYTOPENIA
     Dosage: 120 MUG/KG, UNK
     Dates: start: 20100407, end: 20100416
  5. LACTULOSE [Concomitant]
     Dosage: UNK
     Dates: end: 20100412
  6. ENALAPRIL MALEATE [Concomitant]
     Indication: HYPERTENSION
     Dosage: 40 MG, QD
     Route: 048
     Dates: start: 20100412
  7. PLATELETS [Concomitant]
     Dosage: UNK
     Dates: start: 20100101, end: 20100101
  8. CLONIDINE [Concomitant]
     Dosage: UNK
     Route: 048
     Dates: end: 20100412
  9. DULCOLAX [Concomitant]
     Dosage: UNK
     Route: 048
     Dates: end: 20100412
  10. SYNTHROID [Concomitant]
     Indication: IDIOPATHIC THROMBOCYTOPENIC PURPURA
     Dosage: 50 MUG, QD
  11. PROTONIX [Concomitant]
     Indication: IDIOPATHIC THROMBOCYTOPENIC PURPURA
     Dosage: 40 MG, QD
     Route: 048
     Dates: start: 20100412
  12. DELTASONE [Concomitant]
     Indication: IDIOPATHIC THROMBOCYTOPENIC PURPURA
     Dosage: 10 MG, QD
     Route: 048
     Dates: start: 20100412
  13. COLACE [Concomitant]
     Route: 048
  14. SENOKOT [Concomitant]
     Route: 048
  15. MINOXIDIL [Concomitant]
     Dosage: UNK
     Route: 048
     Dates: end: 20100412
  16. NIFEDIPINE [Concomitant]
     Indication: HYPERTENSION
     Dosage: 90 MG, BID
     Route: 048
     Dates: start: 20100412
  17. RITUXAN [Concomitant]
     Indication: IDIOPATHIC THROMBOCYTOPENIC PURPURA
     Dosage: 10 MG/ML, QWK
     Route: 042
     Dates: start: 20110331
  18. CORTICOSTEROIDS [Concomitant]
  19. ATENOLOL [Concomitant]
     Indication: HYPERTENSION
     Dosage: 25 MG, QD
     Route: 048
     Dates: start: 20100412

REACTIONS (1)
  - CONTUSION [None]
